FAERS Safety Report 8793649 (Version 1)
Quarter: 2012Q4

REPORT INFORMATION
  Report Type: 
  Country: DE (occurrence: DE)
  Receive Date: 20120917
  Receipt Date: 20120917
  Transmission Date: 20130627
  Serious: Yes (Other)
  Sender: FDA-Public Use
  Company Number: DE-GLAXOSMITHKLINE-D0076531A

PATIENT
  Sex: Male

DRUGS (3)
  1. AVODART [Suspect]
     Indication: PROSTATOMEGALY
     Dosage: .5MG Per day
     Route: 065
     Dates: start: 201111, end: 20120907
  2. TEBONIN [Concomitant]
     Dosage: 240MG Per day
     Route: 065
  3. DEVILS CLAW [Concomitant]
     Dosage: 480MG Per day
     Route: 065

REACTIONS (5)
  - Azoospermia [Recovered/Resolved]
  - Semen discolouration [Recovered/Resolved]
  - Erectile dysfunction [Unknown]
  - Loss of libido [Unknown]
  - Semen volume decreased [Unknown]
